FAERS Safety Report 20998936 (Version 2)
Quarter: 2022Q3

REPORT INFORMATION
  Report Type: Spontaneous
  Country: NL (occurrence: NL)
  Receive Date: 20220623
  Receipt Date: 20220708
  Transmission Date: 20221027
  Serious: Yes (Hospitalization)
  Sender: FDA-Public Use
  Company Number: NL-TEVA-2022-NL-2047568

PATIENT
  Age: 4 Decade
  Sex: Male

DRUGS (6)
  1. ASPIRIN [Suspect]
     Active Substance: ASPIRIN
     Indication: Cardiac ventricular thrombosis
     Route: 065
  2. ASPIRIN [Suspect]
     Active Substance: ASPIRIN
     Dosage: 1800 MILLIGRAM DAILY; THREE TIMES A DAY
     Route: 065
  3. ASPIRIN [Suspect]
     Active Substance: ASPIRIN
     Dosage: TAPERED TO LOW-DOSE ASPIRIN WITHIN THE NEXT 6 WEEKS AND EVENTUALLY DISCONTINUED
     Route: 065
  4. CLOPIDOGREL [Suspect]
     Active Substance: CLOPIDOGREL BISULFATE
     Indication: Cardiac ventricular thrombosis
     Dosage: 75 MILLIGRAM DAILY;
     Route: 065
  5. COUMADIN [Suspect]
     Active Substance: WARFARIN SODIUM
     Indication: Cardiac ventricular thrombosis
     Route: 065
  6. NITROUS OXIDE [Suspect]
     Active Substance: NITROUS OXIDE
     Indication: Drug abuse
     Route: 065

REACTIONS (7)
  - Drug ineffective [Unknown]
  - Acute myocardial infarction [Not Recovered/Not Resolved]
  - Coronary artery occlusion [Not Recovered/Not Resolved]
  - Cardiac ventricular thrombosis [Not Recovered/Not Resolved]
  - Vitamin B12 abnormal [Recovered/Resolved]
  - Blood homocysteine increased [Recovered/Resolved]
  - Drug abuse [Unknown]
